FAERS Safety Report 7167675-8 (Version None)
Quarter: 2010Q4

REPORT INFORMATION
  Report Type: 
  Country: None (occurrence: None)
  Receive Date: 20101216
  Receipt Date: 20100719
  Transmission Date: 20110411
  Serious: No
  Sender: FDA-Public Use
  Company Number: A0871105A

PATIENT
  Age: 59 Year
  Sex: Female

DRUGS (2)
  1. NICOTINE POLACRILEX [Suspect]
  2. NICORETTE [Suspect]

REACTIONS (2)
  - INTENTIONAL DRUG MISUSE [None]
  - TOOTH LOSS [None]
